FAERS Safety Report 9199025 (Version 1)
Quarter: 2013Q1

REPORT INFORMATION
  Report Type: Spontaneous
  Country: GB (occurrence: None)
  Receive Date: 20130326
  Receipt Date: 20130326
  Transmission Date: 20140127
  Serious: Yes (Other)
  Sender: FDA-Public Use
  Company Number: 2013-04918

PATIENT
  Age: 40 Year
  Sex: Female

DRUGS (2)
  1. DICLOFENAC SODIUM [Suspect]
     Indication: ARTHRITIS
     Route: 048
     Dates: start: 20130124, end: 20130211
  2. PARACETAMOL (PARACETAMOL) [Concomitant]

REACTIONS (1)
  - Swollen tongue [None]
